FAERS Safety Report 7759135-8 (Version None)
Quarter: 2011Q3

REPORT INFORMATION
  Report Type: 
  Country: None (occurrence: None)
  Receive Date: 20110919
  Receipt Date: 20110914
  Transmission Date: 20111222
  Serious: Yes (Death)
  Sender: FDA-Public Use
  Company Number: PHHY2011DE40426

PATIENT
  Sex: Female
  Weight: 70 kg

DRUGS (6)
  1. FENTANYL [Concomitant]
     Indication: PAIN
     Dosage: 50 UG PER DAY
     Dates: start: 20110401, end: 20110509
  2. ZOMETA [Suspect]
     Dosage: 4 MG, UNK
     Route: 042
     Dates: start: 20110401
  3. ENOXAPARIN SODIUM [Concomitant]
     Dosage: 800 IU, UNK
     Dates: start: 20050101
  4. ZOMETA [Suspect]
     Indication: BONE DISORDER
     Dosage: 4 MG, UNK
     Route: 042
     Dates: start: 20110119
  5. METAMIZOL [Concomitant]
     Dates: start: 20110401, end: 20110509
  6. FEMARA [Concomitant]
     Dosage: 2.5 MG, UNK
     Dates: start: 20110118

REACTIONS (5)
  - GENERAL PHYSICAL HEALTH DETERIORATION [None]
  - CARDIAC FAILURE [None]
  - NEOPLASM PROGRESSION [None]
  - DYSPNOEA [None]
  - NEOPLASM MALIGNANT [None]
